FAERS Safety Report 13928860 (Version 2)
Quarter: 2017Q3

REPORT INFORMATION
  Report Type: Spontaneous
  Country: GB (occurrence: GB)
  Receive Date: 20170901
  Receipt Date: 20170913
  Transmission Date: 20171127
  Serious: Yes (Other)
  Sender: FDA-Public Use
  Company Number: GB-TEVA-801023ACC

PATIENT
  Sex: Male

DRUGS (1)
  1. BICALUTAMIDE. [Suspect]
     Active Substance: BICALUTAMIDE
     Dosage: OVER A YEAR
     Route: 065

REACTIONS (2)
  - Haemoptysis [Unknown]
  - Lung disorder [Unknown]
